FAERS Safety Report 11101161 (Version 2)
Quarter: 2015Q2

REPORT INFORMATION
  Report Type: Spontaneous
  Country: US (occurrence: US)
  Receive Date: 20150508
  Receipt Date: 20150630
  Transmission Date: 20150821
  Serious: Yes (Hospitalization, Other)
  Sender: FDA-Public Use
  Company Number: US-PFIZER INC-2015155021

PATIENT
  Age: 58 Year
  Sex: Male

DRUGS (9)
  1. DEPO-TESTOSTERONE [Suspect]
     Active Substance: TESTOSTERONE CYPIONATE
     Indication: HORMONE REPLACEMENT THERAPY
     Dosage: UNK, CURRENTLY REDUCING DOSAGE TO DISCONTINUE
     Dates: start: 200403
  2. TESTIM [Suspect]
     Active Substance: TESTOSTERONE
     Indication: DEPRESSION
  3. TESTIM [Suspect]
     Active Substance: TESTOSTERONE
     Indication: HORMONE REPLACEMENT THERAPY
     Dosage: UNK, DAILY (CURRENTLY REDUCING DOSAGE TO DISCONTINUE)
     Dates: start: 200403
  4. ZOLPIDEM [Concomitant]
     Active Substance: ZOLPIDEM\ZOLPIDEM TARTRATE
     Indication: INSOMNIA
     Dosage: 10 MG, UNK
     Dates: start: 1998
  5. XANAX [Concomitant]
     Active Substance: ALPRAZOLAM
     Indication: ANXIETY
     Dosage: UNK
     Dates: start: 2010
  6. TESTIM [Suspect]
     Active Substance: TESTOSTERONE
     Indication: FATIGUE
  7. TESTIM [Suspect]
     Active Substance: TESTOSTERONE
     Indication: LIBIDO DECREASED
  8. TESTIM [Suspect]
     Active Substance: TESTOSTERONE
     Indication: WEIGHT INCREASED
  9. TESTIM [Suspect]
     Active Substance: TESTOSTERONE
     Indication: ASTHENIA

REACTIONS (1)
  - Myocardial infarction [Unknown]

NARRATIVE: CASE EVENT DATE: 20130503
